FAERS Safety Report 10466794 (Version 6)
Quarter: 2014Q4

REPORT INFORMATION
  Report Type: Report from Study
  Country: US (occurrence: US)
  Receive Date: 20140922
  Receipt Date: 20141009
  Transmission Date: 20150528
  Serious: Yes (Hospitalization, Disabling)
  Sender: FDA-Public Use
  Company Number: US-009507513-1409USA002229

PATIENT
  Age: 63 Year
  Sex: Male
  Weight: 100.6 kg

DRUGS (14)
  1. VALIUM [Concomitant]
     Active Substance: DIAZEPAM
     Dosage: TAKE 1 TABLET BY MOUTH EVERY 8 (EIGHT) HOURS AS NEEDED
     Route: 048
  2. CHONDROITIN SULFATE (BOVINE)\GLUCOSAMINE SULFATE [Concomitant]
     Active Substance: CHONDROITIN SULFATE (BOVINE)\GLUCOSAMINE SULFATE
     Dosage: TAKE 1 TABLET BY MOUTH DAILY
     Route: 048
  3. ELAVIL [Concomitant]
     Active Substance: AMITRIPTYLINE HYDROCHLORIDE
     Dosage: TAKE 25 MG BY MOUTH AT BEDTIME
     Route: 048
  4. METHYLPREDNISOLONE. [Concomitant]
     Active Substance: METHYLPREDNISOLONE
     Dosage: 1 DF, QD
     Route: 048
  5. PERCOCET [Concomitant]
     Active Substance: ACETAMINOPHEN\OXYCODONE HYDROCHLORIDE
     Dosage: TAKE 1-2 TABLETS BY MOUTH EVERY 6 (SIX) HOURS AS NEEDED
     Route: 048
  6. FIBER [Concomitant]
     Active Substance: PSYLLIUM HUSK
     Dosage: TAKE BY MOUTH
     Route: 048
  7. PEMBROLIZUMAB. [Suspect]
     Active Substance: PEMBROLIZUMAB
     Indication: METASTATIC MALIGNANT MELANOMA
     Dosage: 2 MG/KG, Q3W, TOTAL DAILY DOSE 205MG
     Route: 042
     Dates: start: 20140811
  8. ADVIL [Concomitant]
     Active Substance: IBUPROFEN
     Dosage: TAKE 1 TABLET BY MOUTH EVERY 4 (FOUR) HOURS
     Route: 048
  9. NEXIUM [Concomitant]
     Active Substance: ESOMEPRAZOLE MAGNESIUM
     Dosage: TAKE 40 MG BY MOUTH DAILY AS NEEDED
     Route: 048
  10. BENADRYL [Concomitant]
     Active Substance: DIPHENHYDRAMINE HYDROCHLORIDE
     Dosage: TA KE 25 MG BY MOUTH EVERY 6(SIX) HOURS AS NEEDED
     Route: 048
  11. SENOKOT-S [Concomitant]
     Active Substance: DOCUSATE SODIUM\SENNOSIDES
     Dosage: TAKE 1-2 TABLETS BY MOUTH AS NEEDED
     Route: 048
  12. SEREVENT DISKUS [Concomitant]
     Active Substance: SALMETEROL XINAFOATE
     Dosage: USE 1 PUFF 2 (TWO) TIMES DAILY
  13. SYNTHROID [Concomitant]
     Active Substance: LEVOTHYROXINE SODIUM
     Dosage: TAKE 1 TABLET BY MOUTH DAILY
     Route: 048
  14. TYLENOL [Concomitant]
     Active Substance: ACETAMINOPHEN
     Indication: PAIN
     Dosage: TAKE 1,000 MG BY MOUTH EVERY 6 (SIX) HOURS AS NEEDED
     Route: 048

REACTIONS (7)
  - Muscular weakness [Not Recovered/Not Resolved]
  - Pollakiuria [Recovered/Resolved]
  - Haematuria [Recovered/Resolved]
  - Peripheral sensory neuropathy [Not Recovered/Not Resolved]
  - Nausea [Recovered/Resolved]
  - Vomiting [Recovered/Resolved]
  - Constipation [Recovered/Resolved]

NARRATIVE: CASE EVENT DATE: 20140822
